FAERS Safety Report 11896322 (Version 1)
Quarter: 2016Q1

REPORT INFORMATION
  Report Type: Spontaneous
  Country: US (occurrence: US)
  Receive Date: 20160107
  Receipt Date: 20160107
  Transmission Date: 20160526
  Serious: Yes (Other)
  Sender: FDA-Public Use
  Company Number: US-BAYER-2016-000171

PATIENT
  Sex: Female

DRUGS (2)
  1. BENADRYL [Suspect]
     Active Substance: DIPHENHYDRAMINE HYDROCHLORIDE
  2. ALKA-SELTZER GOLD [Suspect]
     Active Substance: ANHYDROUS CITRIC ACID\POTASSIUM BICARBONATE\SODIUM BICARBONATE

REACTIONS (9)
  - Throat tightness [None]
  - Pruritus [None]
  - Lacrimation increased [None]
  - Eye irritation [None]
  - Mental impairment [None]
  - Eye pruritus [None]
  - Hypersensitivity [None]
  - Throat irritation [None]
  - Headache [None]
